FAERS Safety Report 24112869 (Version 4)
Quarter: 2025Q1

REPORT INFORMATION
  Report Type: Report from Study
  Country: US (occurrence: US)
  Receive Date: 20240719
  Receipt Date: 20250118
  Transmission Date: 20250409
  Serious: Yes (Hospitalization, Other)
  Sender: TAKEDA
  Company Number: US-TAKEDA-2024TUS071950

PATIENT
  Sex: Female

DRUGS (12)
  1. PONATINIB [Suspect]
     Active Substance: PONATINIB
     Indication: Acute lymphocytic leukaemia
     Dosage: 30 MILLIGRAM, QD
  2. PONATINIB [Suspect]
     Active Substance: PONATINIB
     Dosage: 15 MILLIGRAM, QD
  3. PONATINIB [Suspect]
     Active Substance: PONATINIB
     Dosage: 15 MILLIGRAM, QD
  4. PONATINIB [Suspect]
     Active Substance: PONATINIB
     Dosage: 15 MILLIGRAM, QD
  5. MIRALAX [Concomitant]
     Active Substance: POLYETHYLENE GLYCOL 3350
  6. VALTREX [Concomitant]
     Active Substance: VALACYCLOVIR HYDROCHLORIDE
  7. TYLENOL [Concomitant]
     Active Substance: ACETAMINOPHEN
  8. HYDROCHLOROTHIAZIDE [Concomitant]
     Active Substance: HYDROCHLOROTHIAZIDE
  9. LEVOFLOXACIN [Concomitant]
     Active Substance: LEVOFLOXACIN
  10. GABAPENTIN [Concomitant]
     Active Substance: GABAPENTIN
  11. TRAMADOL HCL [Concomitant]
     Active Substance: TRAMADOL HYDROCHLORIDE
  12. KLOR-CON M10 [Concomitant]
     Active Substance: POTASSIUM CHLORIDE

REACTIONS (9)
  - Thrombosis [Unknown]
  - Delusion [Unknown]
  - Delirium [Unknown]
  - Confusional state [Unknown]
  - Fall [Unknown]
  - Product dose omission issue [Unknown]
  - Muscular weakness [Unknown]
  - Headache [Unknown]
  - Peripheral swelling [Unknown]
